FAERS Safety Report 5256356-3 (Version None)
Quarter: 2007Q1

REPORT INFORMATION
  Report Type: 
  Country: None (occurrence: None)
  Receive Date: 20070301
  Receipt Date: 20070222
  Transmission Date: 20070707
  Serious: Yes (Other)
  Sender: FDA-Public Use
  Company Number: 237090

PATIENT
  Sex: Male

DRUGS (1)
  1. XOLAIR [Suspect]
     Indication: ASTHMA
     Dosage: UNK, 2/MONTH, SUBCUTANEOUS
     Route: 058

REACTIONS (4)
  - AGITATION [None]
  - DEPRESSION [None]
  - INSOMNIA [None]
  - MYOCLONUS [None]
